FAERS Safety Report 10027483 (Version 1)
Quarter: 2014Q1

REPORT INFORMATION
  Report Type: Spontaneous
  Country: US (occurrence: US)
  Receive Date: 20140321
  Receipt Date: 20140321
  Transmission Date: 20141002
  Serious: No
  Sender: FDA-Public Use
  Company Number: US-PFIZER INC-2014079764

PATIENT
  Age: 47 Year
  Sex: Female

DRUGS (1)
  1. VFEND [Suspect]
     Indication: ORAL CANDIDIASIS
     Dosage: 200 MG, 2X/DAY
     Dates: start: 20130709

REACTIONS (1)
  - Hypersensitivity [Unknown]
